FAERS Safety Report 5463110-6 (Version None)
Quarter: 2007Q3

REPORT INFORMATION
  Report Type: 
  Country: None (occurrence: None)
  Receive Date: 20070920
  Receipt Date: 20070913
  Transmission Date: 20080115
  Serious: Yes (Other)
  Sender: FDA-Public Use
  Company Number: US-GENENTECH-247743

PATIENT
  Sex: Female
  Weight: 88.435 kg

DRUGS (1)
  1. XOLAIR [Suspect]
     Indication: ASTHMA
     Dosage: 150 MG, 2/MONTH
     Route: 058
     Dates: start: 20060830

REACTIONS (3)
  - PARAESTHESIA ORAL [None]
  - PRURITUS GENERALISED [None]
  - WHEEZING [None]
